FAERS Safety Report 24679062 (Version 4)
Quarter: 2025Q2

REPORT INFORMATION
  Report Type: Spontaneous
  Country: JP (occurrence: JP)
  Receive Date: 20241129
  Receipt Date: 20250516
  Transmission Date: 20250716
  Serious: Yes (Life-Threatening, Hospitalization)
  Sender: ALEXION PHARMACEUTICALS
  Company Number: JP-ASTRAZENECA-240132154_013120_P_1

PATIENT
  Age: 72 Year
  Weight: 72 kg

DRUGS (33)
  1. IMFINZI [Suspect]
     Active Substance: DURVALUMAB
     Indication: Bile duct cancer
     Dosage: 1500 MILLIGRAM, Q3W
  2. IMFINZI [Suspect]
     Active Substance: DURVALUMAB
     Dosage: 1500 MILLIGRAM, Q4W
  3. GEMCITABINE [Suspect]
     Active Substance: GEMCITABINE
     Indication: Bile duct cancer
     Route: 065
  4. GEMCITABINE [Suspect]
     Active Substance: GEMCITABINE
     Indication: Bile duct cancer
  5. CISPLATIN [Concomitant]
     Active Substance: CISPLATIN
     Indication: Bile duct cancer
     Route: 065
  6. CISPLATIN [Concomitant]
     Active Substance: CISPLATIN
     Indication: Bile duct cancer
  7. ROSUVASTATIN [Concomitant]
     Active Substance: ROSUVASTATIN
     Dosage: AFTER BRAKFAST
  8. ROSUVASTATIN [Concomitant]
     Active Substance: ROSUVASTATIN
     Dosage: AFTER BRAKFAST
  9. URSO [Concomitant]
     Active Substance: URSODIOL
     Dosage: AFTER EVERY MEAL
  10. LANSOPRAZOLE [Concomitant]
     Active Substance: LANSOPRAZOLE
     Indication: Prophylaxis against gastrointestinal ulcer
  11. VOGLIBOSE [Concomitant]
     Active Substance: VOGLIBOSE
     Indication: Diabetes mellitus
  12. VOGLIBOSE [Concomitant]
     Active Substance: VOGLIBOSE
  13. MAGNESIUM OXIDE [Concomitant]
     Active Substance: MAGNESIUM OXIDE
     Indication: Constipation prophylaxis
  14. MAGNESIUM OXIDE [Concomitant]
     Active Substance: MAGNESIUM OXIDE
     Dosage: 660 MILLIGRAM
  15. CANDESARTAN [Concomitant]
     Active Substance: CANDESARTAN
     Indication: Hypertension
  16. CANDESARTAN [Concomitant]
     Active Substance: CANDESARTAN
  17. NIFEDIPINE [Concomitant]
     Active Substance: NIFEDIPINE
     Indication: Hypertension
  18. NIFEDIPINE [Concomitant]
     Active Substance: NIFEDIPINE
     Dosage: 20 MILLIGRAM
  19. LASIX [Concomitant]
     Active Substance: FUROSEMIDE
     Indication: Hypertension
  20. CALONAL [Concomitant]
     Active Substance: ACETAMINOPHEN
     Indication: Bile duct cancer
  21. CALONAL [Concomitant]
     Active Substance: ACETAMINOPHEN
  22. CANDESARTAN CILEXETIL [Concomitant]
     Active Substance: CANDESARTAN CILEXETIL
     Dosage: AFTER BRAKFAST
  23. CANDESARTAN CILEXETIL [Concomitant]
     Active Substance: CANDESARTAN CILEXETIL
     Dosage: AFTER BRAKFAST
  24. FEBUXOSTAT [Concomitant]
     Active Substance: FEBUXOSTAT
     Dosage: AFTER BRAKFAST
  25. FEBUXOSTAT [Concomitant]
     Active Substance: FEBUXOSTAT
     Dosage: AFTER BRAKFAST
  26. VOGLIBOSE [Concomitant]
     Active Substance: VOGLIBOSE
     Dosage: BEFORE EVERY MEAL
  27. VOGLIBOSE [Concomitant]
     Active Substance: VOGLIBOSE
     Dosage: BEFORE EVERY MEAL
  28. GASTER [Concomitant]
     Active Substance: FAMOTIDINE
     Dosage: AFTER BRAKFAST AND EVENING MEAL
  29. GASTER [Concomitant]
     Active Substance: FAMOTIDINE
     Dosage: AFTER BRAKFAST AND EVENING MEAL
  30. REBAMIPIDE [Concomitant]
     Active Substance: REBAMIPIDE
     Dosage: AFTER EVERY MEAL
  31. REBAMIPIDE [Concomitant]
     Active Substance: REBAMIPIDE
     Dosage: AFTER EVERY MEAL
  32. MAGNESIUM OXIDE [Concomitant]
     Active Substance: MAGNESIUM OXIDE
     Dosage: AFTER EVERY MEAL
  33. MAGNESIUM OXIDE [Concomitant]
     Active Substance: MAGNESIUM OXIDE
     Dosage: AFTER EVERY MEAL

REACTIONS (3)
  - Interstitial lung disease [Recovering/Resolving]
  - Pneumonia bacterial [Recovered/Resolved]
  - Hepatic function abnormal [Recovering/Resolving]
